FAERS Safety Report 15749881 (Version 13)
Quarter: 2019Q4

REPORT INFORMATION
  Report Type: Report from Study
  Country: US (occurrence: US)
  Receive Date: 20181221
  Receipt Date: 20191023
  Transmission Date: 20200122
  Serious: Yes (Hospitalization, Other)
  Sender: FDA-Public Use
  Company Number: US-TESAROUBC-2018-TSO1908-US

PATIENT
  Age: 73 Year
  Sex: Female

DRUGS (9)
  1. NIRAPARIB [Suspect]
     Active Substance: NIRAPARIB
     Dosage: 200 MG, QD
     Route: 048
     Dates: start: 20181127, end: 20181214
  2. IRON [Concomitant]
     Active Substance: IRON
     Indication: PRODUCT USED FOR UNKNOWN INDICATION
  3. NIRAPARIB [Suspect]
     Active Substance: NIRAPARIB
     Dosage: 200 MG, QPM WITH FOOD
     Route: 048
  4. NIRAPARIB [Suspect]
     Active Substance: NIRAPARIB
     Dosage: 200 MG, 2 CAPSULES BY MOUTH ONCE DAILY
     Route: 048
  5. NIRAPARIB [Suspect]
     Active Substance: NIRAPARIB
     Indication: MALIGNANT PERITONEAL NEOPLASM
     Dosage: 200 MG, QD IN THE MORNING
     Route: 048
     Dates: start: 20181028, end: 20181116
  6. NIRAPARIB [Suspect]
     Active Substance: NIRAPARIB
     Dosage: 200 MG, QAM WITHOUT FOOD
     Route: 048
     Dates: start: 20181221, end: 20190910
  7. NIRAPARIB [Suspect]
     Active Substance: NIRAPARIB
     Dosage: 200 MG, QPM WITH FOOD
     Route: 048
     Dates: start: 20190911
  8. NIRAPARIB [Suspect]
     Active Substance: NIRAPARIB
     Dosage: 200 MG, QAM AFTER BREAKFAST
  9. AMLODIPINE [Concomitant]
     Active Substance: AMLODIPINE BESYLATE
     Indication: PRODUCT USED FOR UNKNOWN INDICATION

REACTIONS (10)
  - Constipation [Not Recovered/Not Resolved]
  - Contusion [Recovered/Resolved]
  - Hypoglycaemia [Unknown]
  - Product dose omission [Unknown]
  - Thrombocytopenia [Recovered/Resolved]
  - Epistaxis [Recovered/Resolved]
  - Loss of consciousness [Unknown]
  - Peripheral swelling [Unknown]
  - Arthropod bite [Unknown]
  - Red blood cell count decreased [Unknown]

NARRATIVE: CASE EVENT DATE: 201811
